FAERS Safety Report 6664758-3 (Version None)
Quarter: 2010Q1

REPORT INFORMATION
  Report Type: 
  Country: None (occurrence: None)
  Receive Date: 20100330
  Receipt Date: 20100315
  Transmission Date: 20100710
  Serious: Yes (Hospitalization, Other)
  Sender: FDA-Public Use
  Company Number: AUR-APL-2010-00355

PATIENT
  Age: 50 Year
  Sex: Female

DRUGS (3)
  1. ONDANSETRON [Suspect]
     Dosage: ORAL
     Route: 048
     Dates: start: 20081009, end: 20081016
  2. AXITINIB; PLACEBO [Suspect]
     Indication: PANCREATIC CARCINOMA
     Dosage: 5MG, BID, ORAL
     Route: 048
     Dates: start: 20080904, end: 20081022
  3. GEMCITABINE HCL [Suspect]
     Indication: PANCREATIC CARCINOMA
     Dosage: 1000MG/M2, EVERY 3W/4; IV
     Route: 042
     Dates: start: 20080904, end: 20081016

REACTIONS (4)
  - ASCITES [None]
  - CONSTIPATION [None]
  - METASTASES TO GASTROINTESTINAL TRACT [None]
  - SMALL INTESTINAL PERFORATION [None]
